FAERS Safety Report 26163107 (Version 1)
Quarter: 2025Q4

REPORT INFORMATION
  Report Type: Spontaneous
  Country: US (occurrence: US)
  Receive Date: 20251216
  Receipt Date: 20251216
  Transmission Date: 20260118
  Serious: Yes (Hospitalization)
  Sender: ANI
  Company Number: US-ANIPHARMA-2025-US-053488

PATIENT
  Age: 63 Year
  Sex: Female
  Weight: 81.65 kg

DRUGS (8)
  1. CORTICOTROPIN [Suspect]
     Active Substance: CORTICOTROPIN
     Indication: Rheumatoid arthritis
     Dosage: 2 TIMES A WEEK, 80 UNITS
     Route: 058
     Dates: start: 20250807
  2. PREDNISONE [Suspect]
     Active Substance: PREDNISONE
  3. SINGULAIR [Concomitant]
     Active Substance: MONTELUKAST SODIUM
  4. LOSARTAN [Concomitant]
     Active Substance: LOSARTAN
  5. BIKTARVY [Concomitant]
     Active Substance: BICTEGRAVIR SODIUM\EMTRICITABINE\TENOFOVIR ALAFENAMIDE FUMARATE
  6. NEXIUM [Concomitant]
     Active Substance: ESOMEPRAZOLE MAGNESIUM
  7. TEA [Concomitant]
     Active Substance: TEA LEAF
  8. VITAMIN B COMPLEX [Concomitant]
     Active Substance: CYANOCOBALAMIN\DEXPANTHENOL\NIACINAMIDE\PYRIDOXINE HYDROCHLORIDE\RIBOFLAVIN 5^-PHOSPHATE SODIUM\THIA

REACTIONS (10)
  - Lethargy [Recovered/Resolved]
  - Renal disorder [Recovered/Resolved]
  - Bladder catheterisation [Recovered/Resolved]
  - Contraindicated product administered [Not Recovered/Not Resolved]
  - Blood pressure decreased [Recovered/Resolved]
  - Constipation [Recovered/Resolved]
  - Dysuria [Recovered/Resolved]
  - Laboratory test abnormal [Recovered/Resolved]
  - Blood potassium decreased [Recovered/Resolved]
  - Loss of consciousness [None]

NARRATIVE: CASE EVENT DATE: 20250807
